FAERS Safety Report 10176081 (Version 2)
Quarter: 2014Q2

REPORT INFORMATION
  Report Type: Spontaneous
  Country: US (occurrence: US)
  Receive Date: 20140516
  Receipt Date: 20140619
  Transmission Date: 20141212
  Serious: Yes (Life-Threatening, Hospitalization)
  Sender: FDA-Public Use
  Company Number: US-ROXANE LABORATORIES, INC.-2014-RO-00757RO

PATIENT
  Age: 59 Year
  Sex: 0
  Weight: 88 kg

DRUGS (8)
  1. METHOTREXATE [Suspect]
     Indication: RHEUMATOID ARTHRITIS
     Route: 065
     Dates: start: 2010, end: 20131114
  2. PREDNISONE [Concomitant]
     Indication: RHEUMATOID ARTHRITIS
     Route: 065
  3. LEFLUNOMIDE [Concomitant]
     Route: 065
  4. METOPROLOL [Concomitant]
     Indication: HYPERTENSION
     Dosage: 150 MG
     Route: 048
  5. DIGOXIN [Concomitant]
     Indication: CORONARY ARTERY DISEASE
     Dosage: 0.25 MG
     Route: 048
  6. COZAAR [Concomitant]
     Indication: HYPERTENSION
     Dosage: 25 MG
     Route: 048
  7. ATORVASTATIN [Concomitant]
     Indication: BLOOD CHOLESTEROL
     Dosage: 40 MG
     Route: 048
  8. ASPIRIN [Concomitant]
     Indication: CORONARY ARTERY DISEASE
     Route: 065

REACTIONS (4)
  - Lung neoplasm malignant [Not Recovered/Not Resolved]
  - Respiratory failure [Unknown]
  - Interstitial lung disease [Not Recovered/Not Resolved]
  - Bradyphrenia [Not Recovered/Not Resolved]
